FAERS Safety Report 10738138 (Version 1)
Quarter: 2015Q1

REPORT INFORMATION
  Report Type: Spontaneous
  Country: US (occurrence: None)
  Receive Date: 20150122
  Receipt Date: 20150122
  Transmission Date: 20150721
  Serious: Yes (Life-Threatening, Hospitalization)
  Sender: FDA-Public Use
  Company Number: None

PATIENT
  Age: 74 Year
  Sex: Female
  Weight: 69 kg

DRUGS (10)
  1. LOSARTAN [Concomitant]
     Active Substance: LOSARTAN
  2. ACETAMINOPHEN. [Concomitant]
     Active Substance: ACETAMINOPHEN
  3. RIVAROXABAN [Suspect]
     Active Substance: RIVAROXABAN
     Indication: ATRIAL FIBRILLATION
     Dosage: 1 QD ORAL
     Route: 048
     Dates: start: 20131223, end: 20140109
  4. MULTIVITAMIN [Concomitant]
     Active Substance: VITAMINS
  5. FUROSEMIDE. [Concomitant]
     Active Substance: FUROSEMIDE
  6. ASPIRIN. [Concomitant]
     Active Substance: ASPIRIN
  7. METOPROLOL [Concomitant]
     Active Substance: METOPROLOL
  8. OMEPRAZOLE. [Concomitant]
     Active Substance: OMEPRAZOLE
  9. AMIODARONE [Concomitant]
     Active Substance: AMIODARONE
  10. POTASSIUM [Concomitant]
     Active Substance: POTASSIUM

REACTIONS (6)
  - Dizziness [None]
  - Pallor [None]
  - Gastrointestinal haemorrhage [None]
  - Abdominal discomfort [None]
  - Haemoglobin decreased [None]
  - Gastrointestinal ulcer [None]

NARRATIVE: CASE EVENT DATE: 20140109
